FAERS Safety Report 5467315-X (Version None)
Quarter: 2007Q3

REPORT INFORMATION
  Report Type: 
  Country: None (occurrence: None)
  Receive Date: 20070925
  Receipt Date: 20070913
  Transmission Date: 20080115
  Serious: Yes (Other)
  Sender: FDA-Public Use
  Company Number: US-PFIZER INC-2007076908

PATIENT
  Sex: Female
  Weight: 52.727 kg

DRUGS (1)
  1. CHANTIX [Suspect]
     Indication: SMOKING CESSATION THERAPY
     Route: 048
     Dates: start: 20070902, end: 20070906

REACTIONS (4)
  - ASTHENIA [None]
  - FEELING ABNORMAL [None]
  - HEADACHE [None]
  - NAUSEA [None]
